FAERS Safety Report 24002815 (Version 2)
Quarter: 2024Q2

REPORT INFORMATION
  Report Type: Report from Study
  Country: DE (occurrence: DE)
  Receive Date: 20240624
  Receipt Date: 20240629
  Transmission Date: 20240716
  Serious: Yes (Hospitalization, Other)
  Sender: FDA-Public Use
  Company Number: DE-PHARMALEX-2022000320

PATIENT
  Age: 34 Year
  Sex: Male

DRUGS (7)
  1. GABAPENTIN [Suspect]
     Active Substance: GABAPENTIN
     Indication: Opioid sparing treatment
     Dosage: 200 MILLIGRAM (AVERAGE 200 MILLIGRAM DAILY DOSE)
     Route: 065
  2. PREGABALIN [Suspect]
     Active Substance: PREGABALIN
     Indication: Opioid sparing treatment
     Dosage: 200 MILLIGRAM (AVERAGE 200 MILLIGRAM DAILY DOSE)
     Route: 065
  3. PREGABALIN [Suspect]
     Active Substance: PREGABALIN
     Dosage: 600 MILLIGRAM, TWO TIMES A DAY(600 MILLIGRAM, QD (AVERAGE 600 MG DAILY DOSE))
     Route: 065
  4. METHADONE [Suspect]
     Active Substance: METHADONE HYDROCHLORIDE
     Indication: Product used for unknown indication
     Dosage: UNK
     Route: 065
  5. CALCIUM [Concomitant]
     Active Substance: CALCIUM
     Indication: Product used for unknown indication
     Dosage: UNK
     Route: 065
  6. ALUMINUM [Concomitant]
     Active Substance: ALUMINUM
     Indication: Product used for unknown indication
     Dosage: UNK
     Route: 065
  7. NITROGEN [Concomitant]
     Active Substance: NITROGEN
     Indication: Product used for unknown indication
     Dosage: UNK
     Route: 065

REACTIONS (4)
  - Drug abuse [Unknown]
  - Drug dependence [Unknown]
  - Off label use [Unknown]
  - Product use in unapproved indication [Unknown]
